FAERS Safety Report 7167368-7 (Version None)
Quarter: 2010Q4

REPORT INFORMATION
  Report Type: 
  Country: None (occurrence: None)
  Receive Date: 20101216
  Receipt Date: 20101213
  Transmission Date: 20110411
  Serious: Yes (Other)
  Sender: FDA-Public Use
  Company Number: US-JNJFOC-20101201532

PATIENT
  Sex: Female
  Weight: 101.15 kg

DRUGS (14)
  1. SIMPONI [Suspect]
     Indication: RHEUMATOID ARTHRITIS
     Route: 058
  2. MORPHINE [Concomitant]
     Indication: PAIN
  3. FLEXERIL [Concomitant]
     Indication: MUSCLE TIGHTNESS
     Dosage: 3 TIMES DAILY AND AS NEEDED
  4. WELLBUTRIN [Concomitant]
     Indication: DEPRESSION
  5. KLONOPIN [Concomitant]
     Indication: SLEEP DISORDER
  6. FUROSEMIDE [Concomitant]
     Indication: OEDEMA PERIPHERAL
  7. SPIRONOLACTONE [Concomitant]
     Indication: OEDEMA PERIPHERAL
     Dosage: 1 OR 2 TABLETS DAILY
  8. ASPIRIN [Concomitant]
  9. OMEPRAZOLE [Concomitant]
     Indication: GASTROOESOPHAGEAL REFLUX DISEASE
     Dosage: 1 OR 2 CAPSULES ONCE DAILY AS NEEDED
  10. GABAPENTIN [Concomitant]
     Indication: NEURALGIA
     Dosage: 800 MG TABLET 3 TIMES DAILY OR A HALF TABLET THREE TIMES DAILY AS NEEDED
  11. SUMATRIPTAN [Concomitant]
     Indication: MIGRAINE
     Dosage: ONCE DAILY AS NEEDED
  12. MORPHINE SULFATE [Concomitant]
     Indication: BREAKTHROUGH PAIN
     Dosage: 4 TIMES DAILY AS NEEDED
  13. FLUOXETINE HCL [Concomitant]
     Indication: DEPRESSION
  14. ROZEREM [Concomitant]
     Indication: SLEEP DISORDER
     Dosage: ONCE NIGHTLY AS NEEDED

REACTIONS (4)
  - BLOOD GLUCOSE INCREASED [None]
  - INJECTION SITE PAIN [None]
  - NODULE ON EXTREMITY [None]
  - VARICELLA [None]
